FAERS Safety Report 7272832-6 (Version None)
Quarter: 2011Q1

REPORT INFORMATION
  Report Type: 
  Country: None (occurrence: None)
  Receive Date: 20110128
  Receipt Date: 20110110
  Transmission Date: 20110831
  Serious: No
  Sender: FDA-Public Use
  Company Number: TPH-00318

PATIENT
  Sex: Female

DRUGS (1)
  1. TRIQUILAR (ETHINYLESTRADIOL + LEVONORGESTREL) COATED TABLET [Suspect]
     Indication: ACCIDENTAL DRUG INTAKE BY CHILD
     Dosage: 10 PILLS
     Route: 048
     Dates: start: 20110110, end: 20110110

REACTIONS (1)
  - ACCIDENTAL DRUG INTAKE BY CHILD [None]
